FAERS Safety Report 8669772 (Version 2)
Quarter: 2012Q4

REPORT INFORMATION
  Report Type: 
  Country: CO (occurrence: CO)
  Receive Date: 20120718
  Receipt Date: 20120831
  Transmission Date: 20130627
  Serious: Yes (Hospitalization)
  Sender: FDA-Public Use
  Company Number: CO-ELI_LILLY_AND_COMPANY-CO201207003605

PATIENT
  Age: 37 Year
  Sex: Female

DRUGS (7)
  1. FORTEO [Suspect]
     Indication: OSTEOPOROSIS
     Dosage: 20 ug, qd
     Dates: end: 20120525
  2. FORTEO [Suspect]
     Dosage: 20 ug, qd
     Dates: start: 20120526
  3. CALCIUM VITAMIN D [Concomitant]
  4. CALCITRIOL [Concomitant]
  5. MEGA CAL [Concomitant]
  6. ACETAMINOPHEN [Concomitant]
  7. OMEPRAZOLE [Concomitant]

REACTIONS (3)
  - Uterine pain [Recovered/Resolved]
  - Injection site bruising [Not Recovered/Not Resolved]
  - Hyperhidrosis [Not Recovered/Not Resolved]
